FAERS Safety Report 4658692-8 (Version None)
Quarter: 2005Q2

REPORT INFORMATION
  Report Type: 
  Country: None (occurrence: None)
  Receive Date: 20050511
  Receipt Date: 20050503
  Transmission Date: 20051028
  Serious: Yes (Other)
  Sender: FDA-Public Use
  Company Number: PHBS2005SE06316

PATIENT
  Age: 40 Year
  Sex: Male

DRUGS (3)
  1. RITALIN-SR [Suspect]
     Dosage: 20 MG, BID
     Route: 048
  2. RITALIN-SR [Suspect]
     Dosage: 40 MG, BID
  3. RITALIN-SR [Suspect]
     Dosage: 120-140 MG/D
     Route: 048

REACTIONS (5)
  - BEDRIDDEN [None]
  - EATING DISORDER [None]
  - MOVEMENT DISORDER [None]
  - SOMNOLENCE [None]
  - TREMOR [None]
